FAERS Safety Report 20757986 (Version 1)
Quarter: 2022Q2

REPORT INFORMATION
  Report Type: Spontaneous
  Country: US (occurrence: US)
  Receive Date: 20220427
  Receipt Date: 20220427
  Transmission Date: 20220721
  Serious: No
  Sender: FDA-Public Use
  Company Number: US-PFIZER INC-202101840047

PATIENT
  Age: 28 Year
  Sex: Female

DRUGS (1)
  1. XELJANZ XR [Suspect]
     Active Substance: TOFACITINIB CITRATE
     Indication: Psoriatic arthropathy
     Dosage: 11 MG

REACTIONS (5)
  - Therapeutic product effect incomplete [Unknown]
  - Arthralgia [Unknown]
  - Chondromalacia [Unknown]
  - White blood cell count decreased [Unknown]
  - COVID-19 [Unknown]
